FAERS Safety Report 5459333-2 (Version None)
Quarter: 2007Q3

REPORT INFORMATION
  Report Type: 
  Country: None (occurrence: None)
  Receive Date: 20070919
  Receipt Date: 20070430
  Transmission Date: 20080115
  Serious: Yes (Other)
  Sender: FDA-Public Use
  Company Number: US-ASTRAZENECA-2007UW08843

PATIENT
  Age: 662 Month
  Sex: Female
  Weight: 46.8 kg

DRUGS (4)
  1. SEROQUEL [Suspect]
     Indication: BIPOLAR DISORDER
  2. ZYPREXA [Suspect]
     Indication: MOOD SWINGS
     Route: 048
     Dates: start: 20000701
  3. RISPERDAL [Concomitant]
  4. THORAZINE [Concomitant]
     Route: 048

REACTIONS (2)
  - PANCREATITIS [None]
  - TARDIVE DYSKINESIA [None]
